FAERS Safety Report 6418383-X (Version None)
Quarter: 2009Q4

REPORT INFORMATION
  Report Type: 
  Country: None (occurrence: None)
  Receive Date: 20091021
  Receipt Date: 20090629
  Transmission Date: 20100525
  Serious: No
  Sender: FDA-Public Use
  Company Number: ALL1-2009-01781

PATIENT
  Age: 11 Year
  Sex: Male
  Weight: 41.3 kg

DRUGS (1)
  1. VYVANSE [Suspect]
     Indication: ATTENTION DEFICIT/HYPERACTIVITY DISORDER
     Dosage: 30 MG, 1X/DAY;QD;ORAL
     Route: 048
     Dates: start: 20090401, end: 20090629

REACTIONS (1)
  - CHEST PAIN [None]
